FAERS Safety Report 17324414 (Version 1)
Quarter: 2020Q1

REPORT INFORMATION
  Report Type: Spontaneous
  Country: US (occurrence: US)
  Receive Date: 20200109
  Receipt Date: 20200109
  Transmission Date: 20200409
  Serious: No
  Sender: FDA-Public Use
  Company Number: None

PATIENT
  Sex: Male
  Weight: 77.8 kg

DRUGS (1)
  1. NALOXEGOL OXALATE (787509) [Suspect]
     Active Substance: NALOXEGOL OXALATE
     Dosage: ?          OTHER DOSE:14 TABLET;?
     Dates: start: 20191224, end: 20191224

REACTIONS (6)
  - Nausea [None]
  - Decreased appetite [None]
  - Vomiting [None]
  - Weight decreased [None]
  - Tachycardia [None]
  - Blood creatinine increased [None]

NARRATIVE: CASE EVENT DATE: 20191225
